FAERS Safety Report 4823471-5 (Version None)
Quarter: 2005Q4

REPORT INFORMATION
  Report Type: 
  Country: None (occurrence: None)
  Receive Date: 20051107
  Receipt Date: 20051103
  Transmission Date: 20060501
  Serious: Yes (Death, Other)
  Sender: FDA-Public Use
  Company Number: 2005S1007005

PATIENT
  Age: 26 Year
  Sex: Male
  Weight: 54.8852 kg

DRUGS (1)
  1. CYSTAGON [Suspect]
     Indication: CYSTINOSIS
     Dosage: PO
     Route: 048

REACTIONS (17)
  - ASCITES [None]
  - CAPUT MEDUSAE [None]
  - DEPRESSION [None]
  - GASTRIC VARICES [None]
  - HAEMODIALYSIS [None]
  - HEPATIC ENCEPHALOPATHY [None]
  - HEPATOMEGALY [None]
  - KIDNEY TRANSPLANT REJECTION [None]
  - MULTI-ORGAN FAILURE [None]
  - PORTAL HYPERTENSION [None]
  - PORTAL VEIN THROMBOSIS [None]
  - RENAL TRANSPLANT [None]
  - SPIDER NAEVUS [None]
  - SPLENOMEGALY [None]
  - TREATMENT NONCOMPLIANCE [None]
  - UMBILICAL HERNIA [None]
  - VARICES OESOPHAGEAL [None]
